FAERS Safety Report 8992159 (Version 1)
Quarter: 2012Q4

REPORT INFORMATION
  Report Type: Report from Study
  Country: CA (occurrence: CA)
  Receive Date: 20121231
  Receipt Date: 20121231
  Transmission Date: 20130627
  Serious: Yes (Hospitalization, Other)
  Sender: FDA-Public Use
  Company Number: CA-ROCHE-GNE248447

PATIENT
  Age: 59 None
  Sex: Male
  Weight: 88.09 kg

DRUGS (1)
  1. XOLAIR [Suspect]
     Indication: ASTHMA
     Dosage: 300 mg, UNK
     Route: 058
     Dates: start: 20070831

REACTIONS (17)
  - Pneumonia aspiration [Recovering/Resolving]
  - Back pain [Unknown]
  - Acute pulmonary oedema [Recovering/Resolving]
  - Asthma [Unknown]
  - Weight decreased [Recovering/Resolving]
  - Dyspnoea exertional [Unknown]
  - Dyspnoea [Not Recovered/Not Resolved]
  - Dysphagia [Recovering/Resolving]
  - Drug ineffective [Unknown]
  - Oedema peripheral [Unknown]
  - Oedema peripheral [Unknown]
  - Visual impairment [Unknown]
  - Blister [Unknown]
  - Productive cough [Unknown]
  - Blood pressure decreased [Unknown]
  - Heart rate increased [Unknown]
  - Body temperature decreased [Unknown]
